FAERS Safety Report 9555592 (Version 1)
Quarter: 2013Q3

REPORT INFORMATION
  Report Type: Spontaneous
  Country: US (occurrence: None)
  Receive Date: 20130724
  Receipt Date: 20130724
  Transmission Date: 20140515
  Serious: Yes (Hospitalization)
  Sender: FDA-Public Use
  Company Number: PHEH2013US005755

PATIENT
  Age: 44 Year
  Sex: Female
  Weight: 104.3 kg

DRUGS (2)
  1. GILENYA (FINGOLIMOD) CAPSULE, 0.5MG [Suspect]
     Indication: MULTIPLE SCLEROSIS
     Route: 048
     Dates: start: 20121213, end: 201303
  2. REBIF (INTERFERON BETA-1A) [Concomitant]

REACTIONS (3)
  - Multiple sclerosis relapse [None]
  - Paraplegia [None]
  - Limb discomfort [None]
